FAERS Safety Report 6465159-3 (Version None)
Quarter: 2009Q4

REPORT INFORMATION
  Report Type: 
  Country: None (occurrence: None)
  Receive Date: 20091201
  Receipt Date: 20091118
  Transmission Date: 20100525
  Serious: Yes (Life-Threatening)
  Sender: FDA-Public Use
  Company Number: RU-GENENTECH-294409

PATIENT
  Sex: Female

DRUGS (3)
  1. RITUXIMAB [Suspect]
     Indication: RHEUMATOID ARTHRITIS
     Dosage: 1000 MG, Q2W
     Route: 042
     Dates: start: 20080110, end: 20090906
  2. GLUCOCORTICOIDS [Concomitant]
     Dosage: UNK MG, QD
     Dates: start: 20060101
  3. METHYLPREDNISOLONE [Concomitant]
     Dosage: 12 MG, QD
     Dates: start: 20060101

REACTIONS (1)
  - ANGIOEDEMA [None]
